FAERS Safety Report 11459482 (Version 1)
Quarter: 2015Q3

REPORT INFORMATION
  Report Type: Spontaneous
  Country: US (occurrence: US)
  Receive Date: 20150904
  Receipt Date: 20150904
  Transmission Date: 20151125
  Serious: Yes (Other)
  Sender: FDA-Public Use
  Company Number: US-TAKEDA-2014TUS005556

PATIENT

DRUGS (7)
  1. JANUVIA [Concomitant]
     Active Substance: SITAGLIPTIN PHOSPHATE
     Dosage: UNK
     Dates: start: 2013
  2. GLYBURIDE. [Concomitant]
     Active Substance: GLYBURIDE
     Indication: DIABETES MELLITUS
     Dosage: 5/500 MG; UNK
     Dates: start: 2004
  3. GLUCOPHAGE [Concomitant]
     Active Substance: METFORMIN HYDROCHLORIDE
     Dosage: 5/500 MG; UNK
     Dates: start: 1999, end: 2002
  4. GLUCOVANCE [Concomitant]
     Active Substance: GLYBURIDE\METFORMIN HYDROCHLORIDE
     Indication: DIABETES MELLITUS
     Dosage: 5/500 MG; UNK
     Dates: start: 2002
  5. GLUCOTROL [Concomitant]
     Active Substance: GLIPIZIDE
     Dosage: 7.5MG, 10MG, 15MG AND 20MG; UNK
     Dates: start: 1993, end: 2002
  6. METFORMIN [Concomitant]
     Active Substance: METFORMIN HYDROCHLORIDE
     Dosage: 5/500 MG; UNK
     Dates: start: 2002
  7. ACTOS [Suspect]
     Active Substance: PIOGLITAZONE HYDROCHLORIDE
     Indication: TYPE 2 DIABETES MELLITUS
     Dosage: 30MG AND 45MG; UNK
     Route: 048
     Dates: start: 200304, end: 2011

REACTIONS (1)
  - Bladder transitional cell carcinoma stage II [Unknown]

NARRATIVE: CASE EVENT DATE: 20031111
